FAERS Safety Report 21535087 (Version 6)
Quarter: 2022Q4

REPORT INFORMATION
  Report Type: Report from Study
  Country: US (occurrence: US)
  Receive Date: 20221101
  Receipt Date: 20221206
  Transmission Date: 20230113
  Serious: No
  Sender: FDA-Public Use
  Company Number: US-NOVARTISTESTPH-NVSC2022US242942

PATIENT
  Sex: Female
  Weight: 76.19 kg

DRUGS (7)
  1. TREPROSTINIL [Suspect]
     Active Substance: TREPROSTINIL
     Indication: Pulmonary arterial hypertension
     Dosage: 35 NG/KG/MIN, CONT
     Route: 058
     Dates: start: 20220805
  2. TREPROSTINIL [Suspect]
     Active Substance: TREPROSTINIL
     Dosage: 7 MG
     Route: 058
  3. TREPROSTINIL [Suspect]
     Active Substance: TREPROSTINIL
     Dosage: 60 NG/KG/MIN, CONT
     Route: 058
  4. ORENITRAM [Suspect]
     Active Substance: TREPROSTINIL
     Indication: Product used for unknown indication
     Dosage: UNK
     Route: 065
     Dates: start: 20221006
  5. ORENITRAM [Suspect]
     Active Substance: TREPROSTINIL
     Dosage: 7.5 MG, TID
     Route: 065
  6. TADALAFIL [Concomitant]
     Active Substance: TADALAFIL
     Indication: Product used for unknown indication
     Dosage: UNK
     Route: 065
  7. OPSUMIT [Concomitant]
     Active Substance: MACITENTAN
     Indication: Product used for unknown indication
     Dosage: UNK
     Route: 065

REACTIONS (6)
  - Migraine [Not Recovered/Not Resolved]
  - Flushing [Not Recovered/Not Resolved]
  - Nausea [Not Recovered/Not Resolved]
  - Diarrhoea [Not Recovered/Not Resolved]
  - Dyspnoea [Unknown]
  - Product dose omission in error [Unknown]
